FAERS Safety Report 18292562 (Version 4)
Quarter: 2020Q4

REPORT INFORMATION
  Report Type: Spontaneous
  Country: JP (occurrence: JP)
  Receive Date: 20200922
  Receipt Date: 20201204
  Transmission Date: 20210113
  Serious: Yes (Death, Other)
  Sender: FDA-Public Use
  Company Number: JP-AMGEN-JPNNI2020135814

PATIENT
  Age: 40 Year
  Sex: Male

DRUGS (8)
  1. BLINCYTO [Suspect]
     Active Substance: BLINATUMOMAB
     Dosage: 28 MICROGRAM, QD
     Route: 041
     Dates: start: 20181217, end: 20190106
  2. DEXART [Concomitant]
     Active Substance: DEXAMETHASONE SODIUM PHOSPHATE
     Indication: PROPHYLAXIS
     Dosage: UNK
     Dates: start: 20181210, end: 20181210
  3. VICCLOX [ACICLOVIR] [Concomitant]
     Active Substance: ACYCLOVIR
     Indication: PROPHYLAXIS
     Dosage: UNK
  4. DEXART [Concomitant]
     Active Substance: DEXAMETHASONE SODIUM PHOSPHATE
     Dosage: UNK
     Dates: start: 20181217, end: 20181217
  5. BLINCYTO [Suspect]
     Active Substance: BLINATUMOMAB
     Indication: B PRECURSOR TYPE ACUTE LEUKAEMIA
     Dosage: 9 MICROGRAM, QD
     Route: 041
     Dates: start: 20181210, end: 20181216
  6. DEPAKENE [Concomitant]
     Active Substance: VALPROIC ACID
     Indication: PROPHYLAXIS
     Dosage: UNK
     Dates: start: 20181210, end: 20190106
  7. URSO [Concomitant]
     Active Substance: URSODIOL
     Indication: PROPHYLAXIS
     Dosage: UNK
  8. FUNGUARD [Concomitant]
     Active Substance: MICAFUNGIN SODIUM
     Indication: PROPHYLAXIS
     Dosage: UNK

REACTIONS (7)
  - Pancreatitis acute [Fatal]
  - Treatment failure [Unknown]
  - Pneumonia fungal [Fatal]
  - Ileus paralytic [Fatal]
  - Adenovirus infection [Fatal]
  - Multiple organ dysfunction syndrome [Fatal]
  - Renal impairment [Fatal]

NARRATIVE: CASE EVENT DATE: 20190126
